FAERS Safety Report 12674414 (Version 1)
Quarter: 2016Q3

REPORT INFORMATION
  Report Type: Spontaneous
  Country: US (occurrence: US)
  Receive Date: 20160822
  Receipt Date: 20160822
  Transmission Date: 20161109
  Serious: No
  Sender: FDA-Public Use
  Company Number: US-BEH-2015056424

PATIENT
  Age: 76 Year
  Sex: Female
  Weight: 56.7 kg

DRUGS (22)
  1. SENTRY SENIOR MULTIVITAMIN [Concomitant]
  2. B COMPLEX #1 [Concomitant]
  3. TEARS PURE DROPS [Concomitant]
  4. ACETAMINOPHEN. [Concomitant]
     Active Substance: ACETAMINOPHEN
  5. CRANBERRY. [Concomitant]
     Active Substance: CRANBERRY
  6. IPRATROPIUM-ALBUTEROL [Concomitant]
     Active Substance: ALBUTEROL\IPRATROPIUM
  7. ZEMAIRA [Suspect]
     Active Substance: .ALPHA.1-PROTEINASE INHIBITOR HUMAN
     Indication: LUNG DISORDER
     Route: 042
     Dates: start: 20120725
  8. SIMVASTATIN. [Concomitant]
     Active Substance: SIMVASTATIN
  9. DIPHENHYDRAMINE. [Concomitant]
     Active Substance: DIPHENHYDRAMINE
  10. EPIPEN [Concomitant]
     Active Substance: EPINEPHRINE
  11. CHILDRENS ASPIRIN [Concomitant]
     Active Substance: ASPIRIN
  12. VITAMIN D [Concomitant]
     Active Substance: CHOLECALCIFEROL
  13. MAGNESIUM [Concomitant]
     Active Substance: MAGNESIUM
  14. GRAPE SEED OIL [Concomitant]
  15. TRIAMTERENE-HCTZ [Concomitant]
     Active Substance: HYDROCHLOROTHIAZIDE\TRIAMTERENE
  16. OMEPRAZOLE. [Concomitant]
     Active Substance: OMEPRAZOLE
  17. ZEMAIRA [Suspect]
     Active Substance: .ALPHA.1-PROTEINASE INHIBITOR HUMAN
     Indication: ALPHA-1 ANTI-TRYPSIN DEFICIENCY
  18. SODIUM CHLORIDE. [Concomitant]
     Active Substance: SODIUM CHLORIDE
  19. DULERA [Concomitant]
     Active Substance: FORMOTEROL FUMARATE DIHYDRATE\MOMETASONE FUROATE
  20. CALCIUM [Concomitant]
     Active Substance: CALCIUM
  21. VITAMIN D3 [Concomitant]
     Active Substance: CHOLECALCIFEROL
  22. METFORMIN HCL [Concomitant]
     Active Substance: METFORMIN HYDROCHLORIDE

REACTIONS (1)
  - Cough [Unknown]

NARRATIVE: CASE EVENT DATE: 201511
